FAERS Safety Report 13049811 (Version 13)
Quarter: 2021Q3

REPORT INFORMATION
  Report Type: Spontaneous
  Country: JP (occurrence: JP)
  Receive Date: 20161221
  Receipt Date: 20210918
  Transmission Date: 20211014
  Serious: Yes (Death, Life-Threatening, Hospitalization, Other)
  Sender: FDA-Public Use
  Company Number: JP-UNITED THERAPEUTICS-UNT-2016-010698

PATIENT
  Age: 26 Year
  Sex: Male
  Weight: 62 kg

DRUGS (43)
  1. REMODULIN [Suspect]
     Active Substance: TREPROSTINIL
     Dosage: 0.1278 ?G/KG, CONTINUING
     Route: 041
     Dates: start: 20190130
  2. REMODULIN [Suspect]
     Active Substance: TREPROSTINIL
     Indication: PORTOPULMONARY HYPERTENSION
     Dosage: 0.000625 ?G/KG, CONTINUING
     Route: 058
     Dates: start: 20160622
  3. REMODULIN [Suspect]
     Active Substance: TREPROSTINIL
     Dosage: 0.00625 ?G/KG, CONTINUING
     Route: 058
     Dates: start: 20160714
  4. REMODULIN [Suspect]
     Active Substance: TREPROSTINIL
     Dosage: 0.010625 ?G/KG, CONTINUING
     Route: 058
     Dates: start: 20160716
  5. REMODULIN [Suspect]
     Active Substance: TREPROSTINIL
     Dosage: 0.008125 ?G/KG, CONTINUING
     Route: 058
     Dates: start: 20160720
  6. REMODULIN [Suspect]
     Active Substance: TREPROSTINIL
     Indication: PORTOPULMONARY HYPERTENSION
     Dosage: UNK UNK, CONTINUING
     Route: 041
     Dates: start: 20160918, end: 20160926
  7. OPSUMIT [Suspect]
     Active Substance: MACITENTAN
     Indication: PORTOPULMONARY HYPERTENSION
     Dosage: 1 MG, UNK
     Route: 048
     Dates: start: 20161012
  8. URSODEOXYCHOLIC ACID [Concomitant]
     Active Substance: URSODIOL
     Indication: PRODUCT USED FOR UNKNOWN INDICATION
     Dosage: UNK
     Route: 065
     Dates: start: 20190201, end: 20190518
  9. REMODULIN [Suspect]
     Active Substance: TREPROSTINIL
     Dosage: 0.005625 ?G/KG, CONTINUING
     Route: 058
     Dates: start: 20160702
  10. REMODULIN [Suspect]
     Active Substance: TREPROSTINIL
     Dosage: UNK, CONTINUING
     Route: 041
     Dates: end: 20190528
  11. ADEMPAS [Concomitant]
     Active Substance: RIOCIGUAT
     Indication: PORTOPULMONARY HYPERTENSION
     Dosage: 0.5 MG, QD
     Route: 048
     Dates: start: 20171206
  12. BAKTAR [Concomitant]
     Active Substance: SULFAMETHOXAZOLE\TRIMETHOPRIM
     Indication: PROPHYLAXIS
     Dosage: UNK
     Route: 065
     Dates: start: 20190210, end: 20190518
  13. VALACICLOVIR [Concomitant]
     Active Substance: VALACYCLOVIR HYDROCHLORIDE
     Indication: PROPHYLAXIS
     Dosage: UNK
     Route: 065
     Dates: start: 20190210, end: 20190518
  14. REMODULIN [Suspect]
     Active Substance: TREPROSTINIL
     Dosage: 0.004375 ?G/KG, CONTINUING
     Route: 058
     Dates: start: 20160628
  15. REMODULIN [Suspect]
     Active Substance: TREPROSTINIL
     Dosage: UNK UNK, CONTINUING
     Route: 041
     Dates: start: 20160929
  16. REMODULIN [Suspect]
     Active Substance: TREPROSTINIL
     Dosage: 0.130 ?G/KG, CONTINUING
     Route: 041
     Dates: start: 201901
  17. OPSUMIT [Suspect]
     Active Substance: MACITENTAN
     Dosage: 2 MG, UNK
     Route: 048
     Dates: start: 20161018
  18. VENTAVIS [Concomitant]
     Active Substance: ILOPROST
     Indication: PORTOPULMONARY HYPERTENSION
     Dosage: 5 ?G, Q6H
     Dates: start: 20160818
  19. FUROSEMIDE. [Concomitant]
     Active Substance: FUROSEMIDE
     Indication: PORTOPULMONARY HYPERTENSION
     Dosage: 160 MG, DAILY
     Route: 048
     Dates: start: 20160826
  20. MIYA?BM [Concomitant]
     Active Substance: CLOSTRIDIUM BUTYRICUM SPORES STRAIN M-55
     Indication: PROPHYLAXIS
     Dosage: UNK
     Route: 065
     Dates: start: 20190201, end: 20190518
  21. REMODULIN [Suspect]
     Active Substance: TREPROSTINIL
     Dosage: 0.002 ?G/KG, CONTINUING
     Route: 041
     Dates: start: 201902
  22. REMODULIN [Suspect]
     Active Substance: TREPROSTINIL
     Dosage: 0.001 ?G/KG, CONTINUING
     Route: 041
     Dates: start: 201903
  23. SPIRONOLACTONE. [Concomitant]
     Active Substance: SPIRONOLACTONE
     Indication: PORTOPULMONARY HYPERTENSION
     Dosage: UNK
     Route: 048
     Dates: start: 20160826
  24. FAMOTIDINE. [Concomitant]
     Active Substance: FAMOTIDINE
     Indication: PRODUCT USED FOR UNKNOWN INDICATION
     Dosage: 20 MG, QD
     Route: 048
  25. PREDNISOLONE. [Concomitant]
     Active Substance: PREDNISOLONE
     Indication: PROPHYLAXIS
     Dosage: UNK
     Route: 065
     Dates: start: 20190227, end: 20190518
  26. REMODULIN [Suspect]
     Active Substance: TREPROSTINIL
     Dosage: 0.004 ?G/KG, CONTINUING
     Route: 058
     Dates: start: 201606
  27. REMODULIN [Suspect]
     Active Substance: TREPROSTINIL
     Dosage: UNK, CONTINUING
     Route: 058
     Dates: start: 20160927, end: 20160928
  28. REMODULIN [Suspect]
     Active Substance: TREPROSTINIL
     Dosage: 0.0675 ?G/KG, CONTINUING
     Route: 041
     Dates: start: 20161122
  29. REMODULIN [Suspect]
     Active Substance: TREPROSTINIL
     Dosage: 0.127 ?G/KG, CONTINUING
     Route: 041
     Dates: start: 201901
  30. LAC B [Concomitant]
     Active Substance: BIFIDOBACTERIUM SPP.
     Indication: PRODUCT USED FOR UNKNOWN INDICATION
     Dosage: 3 G, Q8H
     Route: 048
  31. ELENTAL [Concomitant]
     Active Substance: AMINO ACIDS\CARBOHYDRATES\MINERALS\SOYBEAN OIL\VITAMINS
     Indication: PRODUCT USED FOR UNKNOWN INDICATION
     Dosage: UNK
     Route: 065
     Dates: start: 20190201, end: 20190518
  32. REMODULIN [Suspect]
     Active Substance: TREPROSTINIL
     Dosage: 0.019375 ?G/KG, CONTINUING
     Route: 058
     Dates: start: 201609
  33. REMODULIN [Suspect]
     Active Substance: TREPROSTINIL
     Dosage: 0.043125 ?G/KG, CONTINUING
     Route: 058
     Dates: start: 201609, end: 20160918
  34. OPSUMIT [Suspect]
     Active Substance: MACITENTAN
     Dosage: 1 MG, UNK
     Route: 048
     Dates: start: 20161030
  35. NAPROXEN. [Suspect]
     Active Substance: NAPROXEN
     Indication: PAIN
     Dosage: UNK
     Route: 065
     Dates: start: 2016
  36. LOPERAMIDE [Concomitant]
     Active Substance: LOPERAMIDE
     Indication: PRODUCT USED FOR UNKNOWN INDICATION
     Dosage: 600 MG, Q12H
     Route: 048
  37. PROGRAF [Concomitant]
     Active Substance: TACROLIMUS
     Indication: PRODUCT USED FOR UNKNOWN INDICATION
     Dosage: UNK
     Route: 065
     Dates: start: 20190318, end: 20190517
  38. GASMOTIN [Concomitant]
     Active Substance: MOSAPRIDE CITRATE
     Indication: PROPHYLAXIS
     Dosage: UNK
     Route: 065
     Dates: start: 20190201, end: 20190518
  39. REMODULIN [Suspect]
     Active Substance: TREPROSTINIL
     Dosage: 0.006875 ?G/KG, CONTINUING
     Route: 058
     Dates: start: 20160709
  40. REMODULIN [Suspect]
     Active Substance: TREPROSTINIL
     Dosage: 0.0295 ?G/KG, CONTINUING
     Route: 058
     Dates: start: 2016
  41. REMODULIN [Suspect]
     Active Substance: TREPROSTINIL
     Dosage: 0.90 ?G/KG, CONTINUING
     Route: 041
     Dates: start: 201702
  42. REMODULIN [Suspect]
     Active Substance: TREPROSTINIL
     Dosage: 0.11 ?G/KG, CONTINUING
     Route: 041
     Dates: start: 20190122
  43. SLOW K [Concomitant]
     Active Substance: POTASSIUM CHLORIDE
     Indication: HYPOKALAEMIA
     Dosage: 1200 MG, Q12H
     Route: 048

REACTIONS (13)
  - Leukopenia [Unknown]
  - Vomiting [Recovering/Resolving]
  - Nausea [Recovered/Resolved]
  - Device related bacteraemia [Recovered/Resolved]
  - Injection site induration [Not Recovered/Not Resolved]
  - Diarrhoea [Recovering/Resolving]
  - Abdominal pain upper [Recovering/Resolving]
  - Right ventricular failure [Recovered/Resolved]
  - Pseudomembranous colitis [Unknown]
  - Thrombocytopenia [Not Recovered/Not Resolved]
  - Hepatic failure [Fatal]
  - Injection site pain [Recovered/Resolved]
  - Stomatitis [Recovered/Resolved]

NARRATIVE: CASE EVENT DATE: 20160623
